FAERS Safety Report 5529521-5 (Version None)
Quarter: 2007Q4

REPORT INFORMATION
  Report Type: 
  Country: None (occurrence: None)
  Receive Date: 20071129
  Receipt Date: 20071120
  Transmission Date: 20080405
  Serious: Yes (Hospitalization, Other)
  Sender: FDA-Public Use
  Company Number: US-PFIZER INC-2007098192

PATIENT
  Age: 75 Year
  Sex: Male

DRUGS (6)
  1. LIPITOR [Suspect]
     Indication: BLOOD CHOLESTEROL INCREASED
  2. SULFONAMIDES, UREA DERIVATIVES [Concomitant]
  3. METFORMIN HCL [Concomitant]
  4. ANTI-DIABETICS [Concomitant]
  5. ACTOS [Concomitant]
  6. AVANDIA [Concomitant]

REACTIONS (2)
  - ASTHENIA [None]
  - HEPATIC FAILURE [None]
